FAERS Safety Report 11904994 (Version 5)
Quarter: 2018Q4

REPORT INFORMATION
  Report Type: Spontaneous
  Country: US (occurrence: US)
  Receive Date: 20160108
  Receipt Date: 20181226
  Transmission Date: 20190204
  Serious: Yes (Death, Hospitalization)
  Sender: FDA-Public Use
  Company Number: US-JNJFOC-20160100843

PATIENT
  Age: 44 Year
  Sex: Male

DRUGS (2)
  1. XARELTO [Suspect]
     Active Substance: RIVAROXABAN
     Indication: DEEP VEIN THROMBOSIS
     Dosage: 15 MG THEN 20 MG
     Route: 048
     Dates: start: 20130927, end: 20140108
  2. XARELTO [Suspect]
     Active Substance: RIVAROXABAN
     Indication: THROMBOSIS
     Dosage: 15 MG THEN 20 MG
     Route: 048
     Dates: start: 20130927, end: 20140108

REACTIONS (2)
  - Haemorrhagic transformation stroke [Fatal]
  - Brain oedema [Fatal]

NARRATIVE: CASE EVENT DATE: 201401
